FAERS Safety Report 17622558 (Version 1)
Quarter: 2020Q2

REPORT INFORMATION
  Report Type: Spontaneous
  Country: US (occurrence: US)
  Receive Date: 20200403
  Receipt Date: 20200403
  Transmission Date: 20200713
  Serious: No
  Sender: FDA-Public Use
  Company Number: None

PATIENT
  Age: 72 Year
  Sex: Female
  Weight: 41.58 kg

DRUGS (4)
  1. FLUCONAZOLE. [Concomitant]
     Active Substance: FLUCONAZOLE
  2. BABY ASPIRIN [Concomitant]
     Active Substance: ASPIRIN
  3. ANORO ELLIPTA [Suspect]
     Active Substance: UMECLIDINIUM BROMIDE\VILANTEROL TRIFENATATE
     Indication: CHRONIC OBSTRUCTIVE PULMONARY DISEASE
     Dosage: ?          QUANTITY:1 PUFF(S);?
     Route: 055
  4. PRESERVISION [Concomitant]
     Active Substance: MINERALS\VITAMINS

REACTIONS (2)
  - Skin disorder [None]
  - Pruritus [None]

NARRATIVE: CASE EVENT DATE: 20200303
